FAERS Safety Report 8114110-9 (Version None)
Quarter: 2012Q1

REPORT INFORMATION
  Report Type: 
  Country: None (occurrence: None)
  Receive Date: 20120204
  Receipt Date: 20111215
  Transmission Date: 20120608
  Serious: Yes (Hospitalization)
  Sender: FDA-Public Use
  Company Number: US-ASTRAZENECA-2011SE75865

PATIENT
  Age: 56 Year
  Sex: Female
  Weight: 63.5 kg

DRUGS (24)
  1. ASPIRIN [Concomitant]
     Indication: ANTICOAGULANT THERAPY
     Route: 048
     Dates: start: 20111128
  2. CLOBETASOL PROPIONATE GEL [Concomitant]
     Indication: HERPES VIRUS INFECTION
     Dosage: AS NEEDED
     Route: 061
  3. GABAPENTIN [Concomitant]
     Indication: ARTHRITIS
     Route: 048
  4. ALPRAZOLAM [Concomitant]
     Indication: DEPRESSION
     Route: 048
  5. MUPIROCIN [Concomitant]
     Indication: HERPES VIRUS INFECTION
     Dosage: AS NEEDED
     Route: 061
  6. CYCLOBENZAPRINE [Concomitant]
     Indication: ARTHRITIS
     Route: 048
  7. SEROQUEL [Suspect]
     Indication: BIPOLAR DISORDER
     Route: 048
     Dates: start: 20080101
  8. MIRTAZAPINE [Concomitant]
     Indication: DEPRESSION
     Route: 048
  9. ALPRAZOLAM [Concomitant]
     Indication: ANXIETY
     Route: 048
  10. ALPRAZOLAM [Concomitant]
     Route: 048
  11. LIPITOR [Concomitant]
     Indication: BLOOD CHOLESTEROL ABNORMAL
     Route: 048
  12. OMEPRAZOLE [Concomitant]
     Indication: GASTROOESOPHAGEAL REFLUX DISEASE
     Route: 048
  13. PROMEZHAPINE [Concomitant]
     Indication: VOMITING
     Route: 048
  14. ALPRAZOLAM [Concomitant]
     Indication: NERVOUSNESS
     Route: 048
  15. LEVOTHYROXINE SODIUM [Concomitant]
     Indication: THYROID DISORDER
     Route: 048
  16. LISINOPRIL [Concomitant]
     Indication: BLOOD PRESSURE ABNORMAL
     Route: 048
  17. PROMEZHAPINE [Concomitant]
     Indication: NAUSEA
     Route: 048
  18. ACYCLOVIR [Concomitant]
     Indication: HERPES VIRUS INFECTION
     Route: 048
  19. ALPRAZOLAM [Concomitant]
     Route: 048
  20. MIRTAZAPINE [Concomitant]
     Indication: ANXIETY
     Route: 048
  21. ALPRAZOLAM [Concomitant]
     Route: 048
  22. CLOPIDOGREL [Concomitant]
     Indication: BLOOD PRESSURE
     Route: 048
  23. NITROGLYCERIN [Concomitant]
     Indication: CHEST PAIN
     Dosage: AS NEEDED
     Route: 061
  24. METOPROLOL TITRATE [Concomitant]
     Indication: CARDIAC DISORDER
     Route: 048

REACTIONS (1)
  - MYOCARDIAL INFARCTION [None]
